FAERS Safety Report 7801783-0 (Version None)
Quarter: 2011Q4

REPORT INFORMATION
  Report Type: 
  Country: None (occurrence: None)
  Receive Date: 20111007
  Receipt Date: 20111003
  Transmission Date: 20120403
  Serious: Yes (Other)
  Sender: FDA-Public Use
  Company Number: GB-BRISTOL-MYERS SQUIBB COMPANY-16127979

PATIENT
  Age: 4 Decade
  Sex: Female

DRUGS (1)
  1. ABILIFY [Suspect]

REACTIONS (1)
  - PSYCHOTIC DISORDER [None]
